FAERS Safety Report 7132414-3 (Version None)
Quarter: 2010Q4

REPORT INFORMATION
  Report Type: 
  Country: None (occurrence: None)
  Receive Date: 20101202
  Receipt Date: 20101125
  Transmission Date: 20110411
  Serious: Yes (Other)
  Sender: FDA-Public Use
  Company Number: DE-TEVA-256893GER

PATIENT
  Sex: Female

DRUGS (7)
  1. OXYCODONE HCL [Suspect]
     Route: 048
     Dates: start: 20100101
  2. AMITRIPTYLINE [Suspect]
     Dates: start: 20101001
  3. DIMENHYDRINATE (VOMEX A) [Concomitant]
  4. MARCUMAR [Concomitant]
  5. PANTOPRAZOLE SODIUM (PANTOZOL) [Concomitant]
  6. METAMIZOLE SODIUM (NOVAMINSULFON) [Concomitant]
  7. PROPRANOLOL HYDROCHLORIDE (DOCITON) [Concomitant]

REACTIONS (3)
  - CONFUSIONAL STATE [None]
  - HOSTILITY [None]
  - MEMORY IMPAIRMENT [None]
